FAERS Safety Report 10173709 (Version 1)
Quarter: 2014Q2

REPORT INFORMATION
  Report Type: Spontaneous
  Country: US (occurrence: None)
  Receive Date: 20140514
  Receipt Date: 20140514
  Transmission Date: 20141212
  Serious: Yes (Other)
  Sender: FDA-Public Use
  Company Number: None

PATIENT
  Age: 34 Year
  Sex: Female
  Weight: 63.5 kg

DRUGS (1)
  1. LUPRON [Suspect]
     Indication: ENDOMETRIOSIS
     Dosage: 1 SHOT PER MONTH ONCE A MONTH GIVEN INTO/UNDER THE SKIN
     Dates: start: 20100603, end: 20101103

REACTIONS (5)
  - Pain [None]
  - Fatigue [None]
  - Weight increased [None]
  - Hysterectomy [None]
  - Gastric disorder [None]
